FAERS Safety Report 17990729 (Version 3)
Quarter: 2020Q3

REPORT INFORMATION
  Report Type: Report from Study
  Country: AR (occurrence: AR)
  Receive Date: 20200707
  Receipt Date: 20200806
  Transmission Date: 20201103
  Serious: No
  Sender: FDA-Public Use
  Company Number: NVSC2020AR190225

PATIENT
  Sex: Male

DRUGS (9)
  1. ARTRAIT [Suspect]
     Active Substance: METHOTREXATE SODIUM
     Indication: PAIN
     Dosage: UNK
     Route: 065
     Dates: end: 20200615
  2. ARTRAIT [Suspect]
     Active Substance: METHOTREXATE SODIUM
     Indication: BACK PAIN
  3. CARVEDILOL. [Concomitant]
     Active Substance: CARVEDILOL
     Indication: CARDIAC DISORDER
     Dosage: 12.5 MG, QD
     Route: 065
     Dates: start: 201308
  4. COSENTYX [Suspect]
     Active Substance: SECUKINUMAB
     Dosage: 300 MG, QMO
     Route: 065
  5. ARTRAIT [Suspect]
     Active Substance: METHOTREXATE SODIUM
     Indication: ARTHRALGIA
  6. FUROSEMIDE. [Concomitant]
     Active Substance: FUROSEMIDE
     Indication: CARDIAC DISORDER
     Dosage: 40 MG, QD
     Route: 065
     Dates: start: 201308
  7. COSENTYX [Suspect]
     Active Substance: SECUKINUMAB
     Indication: PSORIATIC ARTHROPATHY
     Dosage: 150 MG (EVERY 15 DAYS)
     Route: 065
     Dates: start: 201907
  8. ARTRAIT [Suspect]
     Active Substance: METHOTREXATE SODIUM
     Indication: MUSCULOSKELETAL PAIN
  9. SPIRONOLACTONE. [Concomitant]
     Active Substance: SPIRONOLACTONE
     Indication: CARDIAC DISORDER
     Dosage: 25 MG, QD
     Route: 065
     Dates: start: 201308

REACTIONS (6)
  - Liver disorder [Unknown]
  - Nausea [Unknown]
  - Headache [Unknown]
  - Malaise [Unknown]
  - Vomiting [Unknown]
  - Inappropriate schedule of product administration [Unknown]
